FAERS Safety Report 4536609-4 (Version None)
Quarter: 2004Q4

REPORT INFORMATION
  Report Type: 
  Country: None (occurrence: None)
  Receive Date: 20041223
  Receipt Date: 20040818
  Transmission Date: 20050328
  Serious: Yes (Death, Hospitalization, Other)
  Sender: FDA-Public Use
  Company Number: JP-BRISTOL-MYERS SQUIBB COMPANY-12676359

PATIENT
  Age: 50 Year
  Sex: Female

DRUGS (6)
  1. STOCRIN CAPS [Suspect]
     Indication: HIV INFECTION
     Route: 048
     Dates: start: 20040204, end: 20040101
  2. VIDEX EC [Suspect]
     Indication: HIV INFECTION
     Route: 048
     Dates: start: 20040204, end: 20040101
  3. EPIVIR [Suspect]
     Indication: HIV INFECTION
     Dates: start: 20040101
  4. COMBIVIR [Suspect]
     Indication: HIV INFECTION
     Route: 048
     Dates: start: 20040204, end: 20040101
  5. ADRENAL CORTICAL EXTRACT [Concomitant]
  6. SULFAMETHOXAZOLE + TRIMETHOPRIM [Concomitant]

REACTIONS (6)
  - ANTI-HBS ANTIBODY POSITIVE [None]
  - ASCITES [None]
  - GENERAL PHYSICAL HEALTH DETERIORATION [None]
  - HEPATIC ENCEPHALOPATHY [None]
  - HEPATIC FAILURE [None]
  - IMMUNE RECONSTITUTION SYNDROME [None]
